FAERS Safety Report 20430831 (Version 1)
Quarter: 2022Q1

REPORT INFORMATION
  Report Type: Report from Study
  Country: US (occurrence: FR)
  Receive Date: 20220204
  Receipt Date: 20220204
  Transmission Date: 20220423
  Serious: Yes (Hospitalization, Other)
  Sender: FDA-Public Use
  Company Number: US-SERVIER-S21006875

PATIENT

DRUGS (6)
  1. PEGASPARGASE [Suspect]
     Active Substance: PEGASPARGASE
     Indication: Acute lymphocytic leukaemia
     Dosage: 1200 IU, ON D8 AND D36
     Route: 042
     Dates: start: 20210326
  2. TN UNSPECIFIED [Concomitant]
     Indication: Acute lymphocytic leukaemia
     Dosage: 0.7 MG ,ON D1 AND D8
     Route: 042
     Dates: start: 20210319
  3. TN UNSPECIFIED [Concomitant]
     Indication: Acute lymphocytic leukaemia
     Dosage: 8 MG, ON D1
     Route: 037
     Dates: start: 20210319
  4. TN UNSPECIFIED [Concomitant]
     Dosage: 11.5 MG, ON D8, D15, AND D22
     Route: 048
     Dates: start: 20210326
  5. TN UNSPECIFIED [Concomitant]
     Indication: Acute lymphocytic leukaemia
     Dosage: 24 MG, ON D1 TO D21, AND ON D29
     Route: 048
     Dates: start: 20210319
  6. TN UNSPECIFIED [Concomitant]
     Indication: Acute lymphocytic leukaemia
     Dosage: 3 MG, ON D1 TO D5 AND D29 TO D33
     Route: 048
     Dates: start: 20210319

REACTIONS (2)
  - Escherichia sepsis [Not Recovered/Not Resolved]
  - Blood bilirubin increased [Not Recovered/Not Resolved]

NARRATIVE: CASE EVENT DATE: 20210428
